FAERS Safety Report 7631610-6 (Version None)
Quarter: 2011Q3

REPORT INFORMATION
  Report Type: 
  Country: None (occurrence: None)
  Receive Date: 20110725
  Receipt Date: 20110126
  Transmission Date: 20111222
  Serious: No
  Sender: FDA-Public Use
  Company Number: US-BRISTOL-MYERS SQUIBB COMPANY-15499999

PATIENT
  Age: 94 Year
  Sex: Male

DRUGS (6)
  1. ISOSORBIDE DINITRATE [Concomitant]
     Dosage: ISOSORB
  2. COUMADIN [Suspect]
  3. ASPIRIN [Concomitant]
  4. BENICAR [Concomitant]
  5. PRILOSEC [Concomitant]
  6. LASIX [Concomitant]

REACTIONS (1)
  - OROPHARYNGEAL PAIN [None]
